FAERS Safety Report 23043732 (Version 2)
Quarter: 2023Q4

REPORT INFORMATION
  Report Type: Report from Study
  Country: US (occurrence: US)
  Receive Date: 20231009
  Receipt Date: 20231115
  Transmission Date: 20240110
  Serious: Yes (Other)
  Sender: FDA-Public Use
  Company Number: US-ABBVIE-4743851

PATIENT
  Sex: Female

DRUGS (5)
  1. VENCLEXTA [Suspect]
     Active Substance: VENETOCLAX
     Indication: Chronic lymphocytic leukaemia
     Dosage: TAKE 20MG (2X10MG TABS) BY MOUTH EVERY DAY ON WEEK 1. FORM STRENGTH: 10 MG
     Route: 048
  2. VENCLEXTA [Suspect]
     Active Substance: VENETOCLAX
     Indication: Chronic lymphocytic leukaemia
     Dosage: 200MG (2X100MG TABS) DAILY WEEK 4. FORM STRENGTH: 100 MG
     Route: 048
  3. VENCLEXTA [Suspect]
     Active Substance: VENETOCLAX
     Indication: Chronic lymphocytic leukaemia
     Dosage: 50MG (1X50MG TAB) DAILY BY MOUTH WEEK 2. FORM STRENGTH: 50 MG
     Route: 048
  4. VENCLEXTA [Suspect]
     Active Substance: VENETOCLAX
     Indication: Chronic lymphocytic leukaemia
     Dosage: TAKE 4 TABLET(S) BY MOUTH DAILY WITH FOOD AND WATER?FORM STRENGTH: 100MG
     Route: 048
  5. VENCLEXTA [Suspect]
     Active Substance: VENETOCLAX
     Indication: Chronic lymphocytic leukaemia
     Dosage: FORM STRENGTH: 100 MG(1X100MG TAB) BY MOUTH DAILY WEEK 3
     Route: 048

REACTIONS (1)
  - Deafness [Unknown]
